FAERS Safety Report 16456661 (Version 1)
Quarter: 2019Q2

REPORT INFORMATION
  Report Type: Spontaneous
  Country: US (occurrence: US)
  Receive Date: 20190620
  Receipt Date: 20190620
  Transmission Date: 20190711
  Serious: No
  Sender: FDA-Public Use
  Company Number: US-BAYER-2019-118154

PATIENT
  Age: 77 Year
  Sex: Female
  Weight: 96 kg

DRUGS (7)
  1. EYE DROPS [NAPHAZOLINE HYDROCHLORIDE] [Concomitant]
  2. METOPROLOL. [Concomitant]
     Active Substance: METOPROLOL
  3. INSULIN [Concomitant]
     Active Substance: INSULIN NOS
  4. MIRALAX [Suspect]
     Active Substance: POLYETHYLENE GLYCOL 3350
     Indication: GASTROINTESTINAL DISORDER
     Dosage: 1.5 DF, PRN
     Route: 048
     Dates: start: 2017
  5. CHEMISTS^ OWN LOW DOSE ASPIRIN [Concomitant]
     Dosage: 1 DF, QD
  6. LISINOPRIL. [Concomitant]
     Active Substance: LISINOPRIL
  7. SIMVASTATIN. [Concomitant]
     Active Substance: SIMVASTATIN

REACTIONS (3)
  - Choking sensation [Unknown]
  - Drug ineffective [Unknown]
  - Extra dose administered [Unknown]

NARRATIVE: CASE EVENT DATE: 2017
